FAERS Safety Report 8935716 (Version 2)
Quarter: 2012Q4

REPORT INFORMATION
  Report Type: 
  Country: JP (occurrence: JP)
  Receive Date: 20121130
  Receipt Date: 20121205
  Transmission Date: 20130627
  Serious: Yes (Hospitalization)
  Sender: FDA-Public Use
  Company Number: JP-BRISTOL-MYERS SQUIBB COMPANY-17148867

PATIENT
  Sex: Male

DRUGS (3)
  1. AVAPRO [Suspect]
     Indication: HYPERTENSION
     Route: 048
  2. KLARICID [Suspect]
     Route: 048
  3. AMARYL [Suspect]
     Route: 048

REACTIONS (2)
  - Hypoglycaemia [Recovered/Resolved]
  - Cystitis [Not Recovered/Not Resolved]
